FAERS Safety Report 11865239 (Version 2)
Quarter: 2015Q4

REPORT INFORMATION
  Report Type: Spontaneous
  Country: FI (occurrence: FI)
  Receive Date: 20151223
  Receipt Date: 20151230
  Transmission Date: 20160305
  Serious: Yes (Death, Other)
  Sender: FDA-Public Use
  Company Number: FI-SA-2015SA214017

PATIENT
  Age: 79 Year
  Sex: Female

DRUGS (9)
  1. PREDNISOLONE. [Concomitant]
     Active Substance: PREDNISOLONE
     Indication: PNEUMONIA
     Route: 048
     Dates: start: 20151202
  2. DOXIMYCIN [Concomitant]
     Active Substance: DOXYCYCLINE
     Indication: PNEUMONIA
     Route: 048
     Dates: start: 20151130
  3. IPRAMOL [Concomitant]
     Active Substance: ALBUTEROL SULFATE\IPRATROPIUM BROMIDE
     Dosage: (0.5 MG / 2.5 MG PER 2.5 ML NEBULIZER SOLUTION IN SINGLE-DOSE CONTAINER)
     Route: 055
     Dates: start: 20151130
  4. EMCONCOR COMP [Concomitant]
     Indication: HYPERTENSION
     Route: 048
  5. SERONIL [Concomitant]
     Active Substance: FLUOXETINE HYDROCHLORIDE
     Indication: PANIC DISORDER
     Route: 048
  6. PULMICORT TURBUHALER [Concomitant]
     Active Substance: BUDESONIDE
     Indication: ASTHMA
     Dosage: (0.5 MG/ML NEBULIZER SUSPENSION)
     Route: 055
     Dates: start: 20151130
  7. PRIMASPAN [Concomitant]
     Active Substance: ASPIRIN
     Dosage: (100 MG GASTRO-RESISTANT TABLET)
     Route: 048
  8. KLEXANE [Suspect]
     Active Substance: ENOXAPARIN
     Indication: PULMONARY EMBOLISM
     Route: 058
     Dates: start: 20151201
  9. MAREVAN [Suspect]
     Active Substance: WARFARIN SODIUM
     Indication: PULMONARY EMBOLISM
     Route: 048
     Dates: start: 20151201

REACTIONS (11)
  - Multi-organ failure [Fatal]
  - Retroperitoneal haematoma [Fatal]
  - Abdominal wall haematoma [Fatal]
  - Malaise [Fatal]
  - Shock [Fatal]
  - Abdominal pain upper [Fatal]
  - Feeling abnormal [Fatal]
  - International normalised ratio increased [Fatal]
  - Haemoglobin decreased [Fatal]
  - Acidosis [Fatal]
  - International normalised ratio increased [Fatal]

NARRATIVE: CASE EVENT DATE: 20151207
